FAERS Safety Report 6269464-5 (Version None)
Quarter: 2009Q3

REPORT INFORMATION
  Report Type: 
  Country: None (occurrence: None)
  Receive Date: 20090715
  Receipt Date: 20080714
  Transmission Date: 20100115
  Serious: No
  Sender: FDA-Public Use
  Company Number: US-TYCO HEALTHCARE/MALLINCKRODT-T200801157

PATIENT

DRUGS (8)
  1. OXYCODONE [Suspect]
     Indication: PAIN
     Dosage: 15 MG, PRN
     Route: 048
     Dates: start: 20071201, end: 20080601
  2. FENTANYL-100 [Suspect]
     Indication: PAIN
     Dosage: 75 UG, UNK
     Route: 062
     Dates: start: 20060201, end: 20080601
  3. LOPRESSOR [Concomitant]
     Indication: HYPERTENSION
     Dosage: 25 MG, BID
     Route: 048
  4. VESTRIL [Concomitant]
     Indication: HYPERTENSION
     Dosage: 10 MG, QD
     Route: 048
  5. CELEXA [Concomitant]
     Indication: DEPRESSION
     Dosage: 40 MG, QD
     Route: 048
  6. ELAVIL [Concomitant]
     Indication: DEPRESSION
     Dosage: 10 MG, QD
     Route: 048
  7. ZONEGRAN [Concomitant]
     Indication: MIGRAINE
     Dosage: 100 MG, TID
     Route: 048
  8. TEGRETOL [Concomitant]
     Indication: NEURALGIA
     Dosage: 100 MG, 5 TIMES DAILY
     Route: 048

REACTIONS (4)
  - ARRHYTHMIA [None]
  - DIZZINESS [None]
  - HEADACHE [None]
  - WITHDRAWAL SYNDROME [None]
